FAERS Safety Report 22117111 (Version 1)
Quarter: 2023Q1

REPORT INFORMATION
  Report Type: Spontaneous
  Country: US (occurrence: US)
  Receive Date: 20230320
  Receipt Date: 20230320
  Transmission Date: 20230417
  Serious: Yes (Other)
  Sender: FDA-Public Use
  Company Number: US-ELI_LILLY_AND_COMPANY-US202303005093

PATIENT
  Age: 58 Year
  Sex: Male

DRUGS (2)
  1. TRULICITY [Suspect]
     Active Substance: DULAGLUTIDE
     Indication: Type 2 diabetes mellitus
     Dosage: 0.75 MG, WEEKLY (1/W)
     Route: 065
     Dates: start: 202106
  2. ADVIL [Concomitant]
     Active Substance: IBUPROFEN
     Indication: Pain in extremity

REACTIONS (8)
  - Pain in extremity [Not Recovered/Not Resolved]
  - Muscle atrophy [Unknown]
  - Extra dose administered [Unknown]
  - Arthropathy [Unknown]
  - Mental disorder [Unknown]
  - Sleep disorder due to a general medical condition [Unknown]
  - Vomiting [Recovered/Resolved]
  - Nausea [Recovered/Resolved]

NARRATIVE: CASE EVENT DATE: 20210601
